FAERS Safety Report 7242734-X (Version None)
Quarter: 2011Q1

REPORT INFORMATION
  Report Type: 
  Country: None (occurrence: None)
  Receive Date: 20110125
  Receipt Date: 20110113
  Transmission Date: 20110831
  Serious: Yes (Hospitalization)
  Sender: FDA-Public Use
  Company Number: ES-SANOFI-AVENTIS-2011SA002217

PATIENT
  Age: 86 Year
  Sex: Female

DRUGS (4)
  1. ADIRO [Concomitant]
     Indication: CARDIOVASCULAR EVENT PROPHYLAXIS
  2. OMEPRAZOLE [Concomitant]
     Indication: PROPHYLAXIS AGAINST GASTROINTESTINAL ULCER
  3. ENALAPRIL [Concomitant]
     Indication: HYPERTENSION
  4. SEGURIL [Suspect]
     Indication: HYPERTENSION
     Route: 048
     Dates: start: 20100601

REACTIONS (1)
  - HYPERNATRAEMIA [None]
